FAERS Safety Report 8459755 (Version 3)
Quarter: 2012Q4

REPORT INFORMATION
  Report Type: 
  Country: US (occurrence: US)
  Receive Date: 20120314
  Receipt Date: 20121002
  Transmission Date: 20130627
  Serious: No
  Sender: FDA-Public Use
  Company Number: US-ASTRAZENECA-2011SE61477

PATIENT
  Age: 82 Year
  Sex: Male

DRUGS (1)
  1. TOPROL XL [Suspect]
     Route: 048

REACTIONS (5)
  - Dementia Alzheimer^s type [Unknown]
  - Flatulence [Unknown]
  - Faecal incontinence [Unknown]
  - Diabetes mellitus [Unknown]
  - Oedema peripheral [Unknown]
